FAERS Safety Report 8356617-5 (Version None)
Quarter: 2012Q2

REPORT INFORMATION
  Report Type: 
  Country: None (occurrence: None)
  Receive Date: 20120511
  Receipt Date: 20120511
  Transmission Date: 20120825
  Serious: Yes (Hospitalization)
  Sender: FDA-Public Use
  Company Number: None

PATIENT
  Sex: Female
  Weight: 14.9 kg

DRUGS (4)
  1. VINCRISTINE SULFATE [Suspect]
     Dosage: .99 MG
  2. METHOTREXATE [Suspect]
     Dosage: 24.5 MG
  3. DEXAMETHASONE [Suspect]
     Dosage: 17.5 ML
  4. MERCAPTOPURINE [Suspect]
     Dosage: 460 MG

REACTIONS (16)
  - ABDOMINAL COMPARTMENT SYNDROME [None]
  - RESPIRATORY DISTRESS [None]
  - PYREXIA [None]
  - RESPIRATORY FAILURE [None]
  - NEUTROPENIA [None]
  - MALAISE [None]
  - CONDITION AGGRAVATED [None]
  - HYPONATRAEMIA [None]
  - LUNG INFILTRATION [None]
  - PNEUMONIA HERPES VIRAL [None]
  - SEPTIC SHOCK [None]
  - COAGULOPATHY [None]
  - CARDIAC ARREST [None]
  - BONE MARROW FAILURE [None]
  - HEPATIC FAILURE [None]
  - ASCITES [None]
